FAERS Safety Report 4900438-X (Version None)
Quarter: 2006Q1

REPORT INFORMATION
  Report Type: 
  Country: None (occurrence: None)
  Receive Date: 20060203
  Receipt Date: 20060125
  Transmission Date: 20060701
  Serious: Yes (Hospitalization)
  Sender: FDA-Public Use
  Company Number: US-SANOFI-SYNTHELABO-A01200600562

PATIENT
  Sex: Female

DRUGS (7)
  1. DILTIAZEM HCL [Suspect]
     Indication: ILL-DEFINED DISORDER
     Dosage: UNK
     Route: 065
  2. PLAVIX [Suspect]
     Indication: ILL-DEFINED DISORDER
     Dosage: UNK
     Route: 048
  3. ZOLOFT [Suspect]
     Indication: ILL-DEFINED DISORDER
     Dosage: UNK
     Route: 065
  4. REQUIP [Suspect]
     Indication: ILL-DEFINED DISORDER
     Dosage: UNK
     Route: 065
  5. LABETALOL HCL [Suspect]
     Indication: ILL-DEFINED DISORDER
     Dosage: UNK
     Route: 065
  6. HYZAAR [Suspect]
     Indication: ILL-DEFINED DISORDER
     Dosage: UNK
     Route: 065
  7. ASPIRIN [Concomitant]
     Dosage: UNK
     Route: 065

REACTIONS (2)
  - HIP FRACTURE [None]
  - OSTEOARTHRITIS [None]
